FAERS Safety Report 14373470 (Version 2)
Quarter: 2018Q1

REPORT INFORMATION
  Report Type: Spontaneous
  Country: US (occurrence: US)
  Receive Date: 20180110
  Receipt Date: 20180202
  Transmission Date: 20180509
  Serious: Yes (Other)
  Sender: FDA-Public Use
  Company Number: US-ALLERGAN-1800539US

PATIENT

DRUGS (2)
  1. SUCRALFATE - BP [Suspect]
     Active Substance: SUCRALFATE
     Dosage: UNK
     Route: 065
     Dates: start: 2010
  2. SUCRALFATE - BP [Suspect]
     Active Substance: SUCRALFATE
     Indication: GASTRIC ULCER
     Dosage: UNK
     Route: 065
     Dates: start: 2002, end: 2008

REACTIONS (2)
  - Aortic aneurysm [Unknown]
  - Incorrect drug administration duration [Unknown]
